FAERS Safety Report 21533973 (Version 1)
Quarter: 2022Q4

REPORT INFORMATION
  Report Type: Spontaneous
  Country: DE (occurrence: DE)
  Receive Date: 20221101
  Receipt Date: 20221101
  Transmission Date: 20230113
  Serious: Yes (Other)
  Sender: FDA-Public Use
  Company Number: DE-NOVARTISPH-NVSC2022DE239809

PATIENT
  Age: 75 Year
  Sex: Female

DRUGS (2)
  1. ASPIRIN [Suspect]
     Active Substance: ASPIRIN
     Indication: Product used for unknown indication
     Dosage: QD
     Route: 065
  2. MARCUMAR [Suspect]
     Active Substance: PHENPROCOUMON
     Indication: Product used for unknown indication
     Dosage: (DAILY DOSE 1/4), QD
     Route: 048

REACTIONS (6)
  - Thrombosis [Unknown]
  - Vasculitis [Unknown]
  - Haemorrhage subcutaneous [Unknown]
  - Haemorrhage [Unknown]
  - Pruritus [Unknown]
  - Inflammation [Unknown]
